FAERS Safety Report 12162755 (Version 1)
Quarter: 2016Q1

REPORT INFORMATION
  Report Type: Spontaneous
  Country: US (occurrence: None)
  Receive Date: 20160308
  Receipt Date: 20160308
  Transmission Date: 20160526
  Serious: No
  Sender: FDA-Public Use
  Company Number: None

PATIENT
  Age: 67 Year
  Sex: Male
  Weight: 92.08 kg

DRUGS (5)
  1. OMEGA 3 [Concomitant]
     Active Substance: OMEGA-3 FATTY ACIDS
  2. AREDS [Concomitant]
     Active Substance: MINERALS\VITAMINS
  3. FLUORESCEIN [Suspect]
     Active Substance: FLUORESCEIN
     Indication: EYE DISORDER
     Dates: start: 20160225
  4. VITAMINS [Concomitant]
     Active Substance: VITAMINS
  5. MINERAL TABLETS [Concomitant]

REACTIONS (4)
  - Back pain [None]
  - Product quality issue [None]
  - Tinnitus [None]
  - Burning sensation [None]

NARRATIVE: CASE EVENT DATE: 20160225
